FAERS Safety Report 8838842 (Version 1)
Quarter: 2012Q4

REPORT INFORMATION
  Report Type: Spontaneous
  Country: US (occurrence: None)
  Receive Date: 20121011
  Receipt Date: 20121011
  Transmission Date: 20130627
  Serious: Yes (Other)
  Sender: FDA-Public Use
  Company Number: None

PATIENT
  Sex: Male

DRUGS (1)
  1. ISENTRESS [Suspect]
     Dosage: one tablet bid po
     Route: 048
     Dates: start: 20121005, end: 20121008

REACTIONS (2)
  - Tremor [None]
  - Gait disturbance [None]
